FAERS Safety Report 7124088-2 (Version None)
Quarter: 2010Q4

REPORT INFORMATION
  Report Type: 
  Country: None (occurrence: None)
  Receive Date: 20101126
  Receipt Date: 20101111
  Transmission Date: 20110411
  Serious: Yes (Other)
  Sender: FDA-Public Use
  Company Number: PHHY2010US77070

PATIENT
  Sex: Female

DRUGS (3)
  1. FEMARA [Suspect]
     Indication: BREAST CANCER
  2. ZOMETA [Interacting]
  3. CRESTOR [Interacting]

REACTIONS (12)
  - BLOOD CHOLESTEROL INCREASED [None]
  - CHEST PAIN [None]
  - DRUG INTERACTION [None]
  - FEELING ABNORMAL [None]
  - FINGER DEFORMITY [None]
  - HIP DEFORMITY [None]
  - IMPLANT SITE DISCOLOURATION [None]
  - LYMPHOEDEMA [None]
  - RENAL DISORDER [None]
  - SHOULDER DEFORMITY [None]
  - SWELLING [None]
  - WAIST CIRCUMFERENCE INCREASED [None]
